FAERS Safety Report 8474947-3 (Version None)
Quarter: 2012Q2

REPORT INFORMATION
  Report Type: 
  Country: None (occurrence: None)
  Receive Date: 20120628
  Receipt Date: 20120622
  Transmission Date: 20120825
  Serious: Yes (Hospitalization)
  Sender: FDA-Public Use
  Company Number: PHHY2012BR054542

PATIENT
  Sex: Male

DRUGS (3)
  1. RITALIN LA [Suspect]
     Indication: PSYCHOMOTOR HYPERACTIVITY
     Dosage: 1 DF, QD
  2. HIXIZINE [Concomitant]
     Indication: HYPERSENSITIVITY
     Dosage: 5 ML, BID
     Dates: start: 20120616
  3. PREDNISOLONE [Concomitant]
     Indication: HYPERSENSITIVITY
     Dosage: 5 ML, BID

REACTIONS (5)
  - RESTLESSNESS [None]
  - NERVOUSNESS [None]
  - URTICARIA [None]
  - AGGRESSION [None]
  - FOOD POISONING [None]
